FAERS Safety Report 7115271-0 (Version None)
Quarter: 2010Q4

REPORT INFORMATION
  Report Type: 
  Country: None (occurrence: None)
  Receive Date: 20101122
  Receipt Date: 20101109
  Transmission Date: 20110411
  Serious: Yes (Other)
  Sender: FDA-Public Use
  Company Number: US-JNJFOC-20100505796

PATIENT
  Sex: Female
  Weight: 14.52 kg

DRUGS (2)
  1. CHILDREN'S TYLENOL PLUS MULTI-SYMPTOM COLD [Suspect]
     Indication: COUGH
     Dosage: 1 TEASPOON AT 8PM
     Route: 048
  2. CHILDREN'S TYLENOL PLUS MULTI-SYMPTOM COLD [Suspect]
     Indication: PYREXIA
     Dosage: 1 TEASPOON AT 8PM
     Route: 048

REACTIONS (4)
  - NAUSEA [None]
  - PRODUCT QUALITY ISSUE [None]
  - RETCHING [None]
  - SYNCOPE [None]
